FAERS Safety Report 4475821-X (Version None)
Quarter: 2004Q4

REPORT INFORMATION
  Report Type: 
  Country: None (occurrence: None)
  Receive Date: 20041015
  Receipt Date: 19990105
  Transmission Date: 20050328
  Serious: Yes (Other)
  Sender: FDA-Public Use
  Company Number: B043618

PATIENT
  Age: 24 Year
  Sex: Female
  Weight: 49 kg

DRUGS (6)
  1. ZERIT [Suspect]
     Indication: HIV INFECTION
     Route: 048
     Dates: start: 19980603, end: 19980928
  2. VIDEX [Suspect]
     Indication: HIV INFECTION
     Route: 048
     Dates: start: 19980603, end: 19980928
  3. VIRACEPT [Suspect]
     Indication: HIV INFECTION
     Route: 048
     Dates: start: 19980603, end: 19980928
  4. VIRAMUNE [Suspect]
     Indication: HIV INFECTION
     Dosage: DOSE INCREASED TO 2 DAILY STARTING 12-OCT-1998
     Route: 048
     Dates: start: 19980928
  5. RETROVIR [Suspect]
     Indication: HIV INFECTION
     Dates: start: 19940401, end: 19980603
  6. EPIVIR [Suspect]
     Indication: HIV INFECTION
     Dates: start: 19971223, end: 19980603

REACTIONS (5)
  - DRUG EXPOSURE DURING PREGNANCY [None]
  - HAEMOGLOBIN DECREASED [None]
  - INTRA-UTERINE DEATH [None]
  - PREGNANCY [None]
  - WEIGHT INCREASED [None]
